FAERS Safety Report 10159321 (Version 1)
Quarter: 2014Q2

REPORT INFORMATION
  Report Type: Spontaneous
  Country: US (occurrence: None)
  Receive Date: 20140506
  Receipt Date: 20140506
  Transmission Date: 20141212
  Serious: Yes (Other)
  Sender: FDA-Public Use
  Company Number: 2014P1003587

PATIENT
  Age: 86 Year
  Sex: Female

DRUGS (3)
  1. PREDNISONE [Suspect]
     Indication: POLYMYALGIA RHEUMATICA
  2. TERIPARATIDE [Suspect]
     Indication: BONE DENSITY DECREASED
  3. WARFARIN [Suspect]
     Indication: DEEP VEIN THROMBOSIS

REACTIONS (1)
  - Calciphylaxis [None]
